FAERS Safety Report 24287908 (Version 1)
Quarter: 2024Q3

REPORT INFORMATION
  Report Type: Spontaneous
  Country: JP (occurrence: JP)
  Receive Date: 20240905
  Receipt Date: 20240905
  Transmission Date: 20241016
  Serious: Yes (Hospitalization, Other)
  Sender: EISAI
  Company Number: JP-Eisai-202406692_LEN-EC_P_1

PATIENT
  Sex: Female
  Weight: 70 kg

DRUGS (8)
  1. LENVATINIB MESYLATE [Suspect]
     Active Substance: LENVATINIB MESYLATE
     Indication: Endometrial cancer
     Dosage: DOSE AND FREQUENCY UNKNOWN
     Route: 048
  2. LENVATINIB MESYLATE [Suspect]
     Active Substance: LENVATINIB MESYLATE
     Dosage: FREQUENCY UNKNOWN
     Route: 048
  3. LENVATINIB MESYLATE [Suspect]
     Active Substance: LENVATINIB MESYLATE
     Route: 048
  4. LENVATINIB MESYLATE [Suspect]
     Active Substance: LENVATINIB MESYLATE
     Dosage: 5 DAYS ON, 2 DAYS OFF
     Route: 048
  5. LENVATINIB MESYLATE [Suspect]
     Active Substance: LENVATINIB MESYLATE
     Route: 048
  6. LENVATINIB MESYLATE [Suspect]
     Active Substance: LENVATINIB MESYLATE
     Dosage: 5 DAYS ON, 2 DAYS OFF
     Route: 048
  7. LENVATINIB MESYLATE [Suspect]
     Active Substance: LENVATINIB MESYLATE
     Dosage: FREQUENCY UNKNOWN
     Route: 048
  8. KEYTRUDA [Suspect]
     Active Substance: PEMBROLIZUMAB
     Indication: Endometrial cancer
     Dosage: DOSE AND FREQUENCY UNKNOWN
     Route: 065

REACTIONS (19)
  - Hypertension [Unknown]
  - Weight decreased [Unknown]
  - Nausea [Unknown]
  - Decreased appetite [Unknown]
  - Dehydration [Unknown]
  - Palmar-plantar erythrodysaesthesia syndrome [Unknown]
  - Nephropathy toxic [Unknown]
  - Hypothyroidism [Unknown]
  - Acute kidney injury [Unknown]
  - Proteinuria [Unknown]
  - Malaise [Unknown]
  - Constipation [Unknown]
  - Prerenal failure [Unknown]
  - Ureteric stenosis [Unknown]
  - Cancer pain [Unknown]
  - Neuralgia [Unknown]
  - Pain [Unknown]
  - Diarrhoea [Unknown]
  - Eastern Cooperative Oncology Group performance status worsened [Unknown]
